FAERS Safety Report 7549529-8 (Version None)
Quarter: 2011Q2

REPORT INFORMATION
  Report Type: 
  Country: None (occurrence: None)
  Receive Date: 20110615
  Receipt Date: 20090317
  Transmission Date: 20111010
  Serious: Yes (Hospitalization)
  Sender: FDA-Public Use
  Company Number: A0774911A

PATIENT
  Age: 40 Year
  Sex: Female

DRUGS (2)
  1. AVANDAMET [Suspect]
     Route: 048
  2. AVANDIA [Suspect]
     Route: 048

REACTIONS (5)
  - CHEST PAIN [None]
  - ANGINA PECTORIS [None]
  - PAIN IN EXTREMITY [None]
  - DYSPNOEA [None]
  - DEPRESSION [None]
